FAERS Safety Report 9715810 (Version 3)
Quarter: 2014Q3

REPORT INFORMATION
  Report Type: Spontaneous
  Country: JP (occurrence: JP)
  Receive Date: 20131127
  Receipt Date: 20140813
  Transmission Date: 20150326
  Serious: Yes (Death, Hospitalization)
  Sender: FDA-Public Use
  Company Number: JP-BAYER-2013-144589

PATIENT
  Age: 64 Year
  Sex: Male
  Weight: 43 kg

DRUGS (19)
  1. TRANSAMIN [Concomitant]
     Active Substance: TRANEXAMIC ACID
     Dosage: DAILY DOSE 750 MG
     Route: 048
  2. PREDONINE [Concomitant]
     Active Substance: PREDNISOLONE\PREDNISOLONE ACETATE\PREDNISOLONE SODIUM SUCCINATE
     Dosage: DAILY DOSE 60 MG
     Route: 048
  3. LOXONIN [Concomitant]
     Active Substance: LOXOPROFEN SODIUM
     Dosage: DAILY DOSE 180 MG
     Route: 048
  4. MUCOSTA [Concomitant]
     Active Substance: REBAMIPIDE
     Dosage: DAILY DOSE 300 MG
     Route: 048
  5. BESOFTEN [Concomitant]
     Active Substance: SODIUM ALGINATE
     Route: 061
  6. DIOVAN [Concomitant]
     Active Substance: VALSARTAN
     Dosage: 80 MG, OM
     Route: 048
  7. UREA. [Concomitant]
     Active Substance: UREA
     Dosage: UNK
     Route: 061
  8. GOSHAJINKIGAN [Concomitant]
     Active Substance: HERBALS
     Dosage: UNK UNK, TID
     Route: 048
  9. PROTECADIN [Concomitant]
     Active Substance: LAFUTIDINE
     Dosage: DAILY DOSE 20 MG
     Route: 048
  10. LYRICA [Concomitant]
     Active Substance: PREGABALIN
     Dosage: DAILY DOSE 300 MG
     Route: 048
  11. MOHRUS YUTOKU [Concomitant]
     Dosage: 40 MG, QD
     Route: 062
  12. BESOFTEN [Concomitant]
     Active Substance: SODIUM ALGINATE
     Dosage: UNK
     Route: 061
  13. TOPSYM [Concomitant]
     Route: 061
  14. JUVELA N [Concomitant]
     Active Substance: TOCOPHERYL NICOTINATE, D-.ALPHA.
     Dosage: DAILY DOSE 300 MG
     Route: 048
  15. STIVARGA [Suspect]
     Active Substance: REGORAFENIB
     Indication: RECTAL CANCER
     Dosage: 160 MG, QD
     Route: 048
     Dates: start: 20131021, end: 20131110
  16. PYDOXAL [Concomitant]
     Active Substance: PYRIDOXAL
     Dosage: DAILY DOSE 60 MG
     Route: 048
  17. KRESTIN [Concomitant]
     Active Substance: POLYSACCHARIDES
     Dosage: DAILY DOSE 3 G
     Route: 048
  18. FERROMIA [Concomitant]
     Active Substance: FERROUS CITRATE
     Dosage: DAILY DOSE 150 MG
     Route: 048
  19. ADONA [Concomitant]
     Active Substance: CARBAZOCHROME SODIUM SULFONATE
     Dosage: DAILY DOSE 90 MG
     Route: 048

REACTIONS (4)
  - Rectal haemorrhage [Not Recovered/Not Resolved]
  - Interstitial lung disease [Fatal]
  - Rectal cancer [Fatal]
  - General physical health deterioration [Fatal]

NARRATIVE: CASE EVENT DATE: 20131031
